FAERS Safety Report 6269123-9 (Version None)
Quarter: 2009Q3

REPORT INFORMATION
  Report Type: 
  Country: None (occurrence: None)
  Receive Date: 20090715
  Receipt Date: 20081029
  Transmission Date: 20100115
  Serious: Yes (Hospitalization)
  Sender: FDA-Public Use
  Company Number: US-BRISTOL-MYERS SQUIBB COMPANY-14387328

PATIENT
  Age: 66 Year
  Sex: Male
  Weight: 73 kg

DRUGS (4)
  1. BLEOMYCIN SULFATE [Suspect]
     Indication: HODGKIN'S DISEASE
     Dates: start: 20080706
  2. PREDNISONE TAB [Concomitant]
  3. COUMADIN [Concomitant]
  4. PROTONIX [Concomitant]

REACTIONS (2)
  - NIGHT SWEATS [None]
  - PULMONARY TOXICITY [None]
